FAERS Safety Report 9199793 (Version 1)
Quarter: 2013Q1

REPORT INFORMATION
  Report Type: Spontaneous
  Country: TW (occurrence: TW)
  Receive Date: 20130329
  Receipt Date: 20130329
  Transmission Date: 20140127
  Serious: Yes (Other)
  Sender: FDA-Public Use
  Company Number: TW-CUBIST PHARMACEUTICAL, INC.-2013CBST000266

PATIENT
  Sex: 0

DRUGS (1)
  1. CUBICIN [Suspect]
     Indication: BACTERIAL INFECTION
     Dosage: 6.03-11.53 MG/KG
     Route: 042

REACTIONS (1)
  - Pancytopenia [Unknown]
